FAERS Safety Report 7763092-8 (Version None)
Quarter: 2011Q3

REPORT INFORMATION
  Report Type: 
  Country: None (occurrence: None)
  Receive Date: 20110920
  Receipt Date: 20101221
  Transmission Date: 20111222
  Serious: No
  Sender: FDA-Public Use
  Company Number: US-BAUSCH-2010BL007252

PATIENT
  Age: 58 Year
  Sex: Male

DRUGS (6)
  1. PILOCARPINE HYDROCHLORIDE [Concomitant]
     Indication: OPEN ANGLE GLAUCOMA
     Route: 047
     Dates: start: 20081001
  2. ERYTHROCIN 1% [Suspect]
     Indication: BLEPHARITIS
     Route: 047
     Dates: start: 20101101, end: 20101101
  3. ALPHAGAN P [Concomitant]
     Indication: OPEN ANGLE GLAUCOMA
     Route: 047
     Dates: start: 20070801
  4. ERYTHROCIN 1% [Suspect]
     Indication: OFF LABEL USE
     Route: 047
     Dates: start: 20101101, end: 20101101
  5. ARTIFICIAL TEARS [Concomitant]
     Indication: DRY EYE
     Route: 047
     Dates: start: 20070101
  6. TRAVATAN Z [Concomitant]
     Indication: OPEN ANGLE GLAUCOMA
     Route: 047
     Dates: start: 20061101

REACTIONS (4)
  - DRY EYE [None]
  - ERYTHEMA OF EYELID [None]
  - CONDITION AGGRAVATED [None]
  - OCULAR HYPERAEMIA [None]
